FAERS Safety Report 4415091-1 (Version None)
Quarter: 2004Q3

REPORT INFORMATION
  Report Type: 
  Country: None (occurrence: None)
  Receive Date: 20040729
  Receipt Date: 20040722
  Transmission Date: 20050211
  Serious: Yes (Death)
  Sender: FDA-Public Use
  Company Number: S04-USA-02797-01

PATIENT
  Age: 3 Year
  Sex: Female

DRUGS (1)
  1. LEXAPRO [Suspect]
     Indication: STRESS SYMPTOMS
     Dosage: 20 MG QD PO
     Route: 048

REACTIONS (3)
  - COMPLETED SUICIDE [None]
  - GUN SHOT WOUND [None]
  - MOOD SWINGS [None]
